FAERS Safety Report 25564081 (Version 1)
Quarter: 2025Q3

REPORT INFORMATION
  Report Type: Spontaneous
  Country: US (occurrence: US)
  Receive Date: 20250716
  Receipt Date: 20250716
  Transmission Date: 20251021
  Serious: Yes (Hospitalization)
  Sender: ROCHE
  Company Number: US-ROCHE-10000334326

PATIENT
  Sex: Female

DRUGS (1)
  1. OCRELIZUMAB [Suspect]
     Active Substance: OCRELIZUMAB
     Indication: Primary progressive multiple sclerosis
     Route: 065
     Dates: start: 20250611

REACTIONS (11)
  - Throat irritation [Unknown]
  - Headache [Unknown]
  - Hyperhidrosis [Unknown]
  - Dry throat [Unknown]
  - Heart rate increased [Unknown]
  - Nausea [Unknown]
  - Chills [Unknown]
  - Neck pain [Unknown]
  - Rash [Unknown]
  - Neuralgia [Unknown]
  - Herpes zoster [Unknown]

NARRATIVE: CASE EVENT DATE: 20250611
